FAERS Safety Report 25110798 (Version 1)
Quarter: 2025Q1

REPORT INFORMATION
  Report Type: Spontaneous
  Country: CN (occurrence: CN)
  Receive Date: 20250324
  Receipt Date: 20250324
  Transmission Date: 20250408
  Serious: Yes (Hospitalization)
  Sender: ANI
  Company Number: None

PATIENT
  Age: 63 Year
  Sex: Female

DRUGS (3)
  1. FLUVOXAMINE [Suspect]
     Active Substance: FLUVOXAMINE
     Indication: Affective disorder
     Route: 048
     Dates: start: 20250114, end: 20250226
  2. OLANZAPINE [Concomitant]
     Active Substance: OLANZAPINE
     Indication: Cognitive disorder
     Route: 048
     Dates: start: 20250114, end: 20250226
  3. VITAMIN B4 [Concomitant]
     Indication: Product used for unknown indication
     Route: 048

REACTIONS (1)
  - White blood cell count decreased [Recovering/Resolving]

NARRATIVE: CASE EVENT DATE: 20250218
